FAERS Safety Report 10143118 (Version 1)
Quarter: 2014Q2

REPORT INFORMATION
  Report Type: Spontaneous
  Country: US (occurrence: None)
  Receive Date: 20140428
  Receipt Date: 20140428
  Transmission Date: 20141212
  Serious: Yes (Hospitalization, Other)
  Sender: FDA-Public Use
  Company Number: SYM-2014-19814

PATIENT
  Age: 59 Year
  Sex: Male

DRUGS (3)
  1. TIMOLOL [Suspect]
     Indication: EPISTAXIS
     Route: 045
  2. COLECALCIFEROL (COLECALCIFEROL) [Concomitant]
  3. OMEGA-3 FATTY ACIDS (OMEGA-3 FATTY ACIDS) [Concomitant]

REACTIONS (4)
  - Dizziness [None]
  - Sinus bradycardia [None]
  - Bundle branch block right [None]
  - Incorrect route of drug administration [None]
